FAERS Safety Report 22264116 (Version 1)
Quarter: 2023Q2

REPORT INFORMATION
  Report Type: Spontaneous
  Country: FR (occurrence: FR)
  Receive Date: 20230428
  Receipt Date: 20230428
  Transmission Date: 20230722
  Serious: Yes (Other)
  Sender: FDA-Public Use
  Company Number: FR-GUERBETG-FR-20230155

PATIENT
  Sex: Female

DRUGS (1)
  1. DOTAREM [Suspect]
     Active Substance: GADOTERATE MEGLUMINE
     Indication: Magnetic resonance imaging
     Route: 042
     Dates: start: 2023, end: 2023

REACTIONS (2)
  - Musculoskeletal stiffness [Not Recovered/Not Resolved]
  - Extravasation [Not Recovered/Not Resolved]

NARRATIVE: CASE EVENT DATE: 20230101
